FAERS Safety Report 4528694-0 (Version None)
Quarter: 2004Q4

REPORT INFORMATION
  Report Type: 
  Country: None (occurrence: None)
  Receive Date: 20041202
  Receipt Date: 20040909
  Transmission Date: 20050328
  Serious: No
  Sender: FDA-Public Use
  Company Number: 200418443BWH

PATIENT
  Sex: Male

DRUGS (1)
  1. LEVITRA [Suspect]
     Dosage: ORAL
     Route: 048

REACTIONS (5)
  - ERYTHEMA [None]
  - EYE REDNESS [None]
  - FEELING HOT [None]
  - FLUSHING [None]
  - NERVOUSNESS [None]
